FAERS Safety Report 4961748-3 (Version None)
Quarter: 2006Q2

REPORT INFORMATION
  Report Type: 
  Country: None (occurrence: None)
  Receive Date: 20060404
  Receipt Date: 20060207
  Transmission Date: 20061013
  Serious: Yes (Death, Other)
  Sender: FDA-Public Use
  Company Number: PHEH2006US01830

PATIENT
  Age: 63 Year
  Sex: Male

DRUGS (14)
  1. OXYCONTIN [Concomitant]
     Indication: PAIN
     Dosage: 40 MG, Q12H
     Dates: start: 20040206, end: 20050525
  2. OXYCODONE [Concomitant]
     Indication: PAIN
     Dosage: 5 MG EVERY 4-6 HOURS PRN
     Dates: start: 20040206, end: 20050525
  3. ZELNORM /USA/ [Concomitant]
     Dosage: 6 MG, BID
  4. MIRALAX [Concomitant]
     Indication: CONSTIPATION
     Dosage: UNK, PRN
  5. TRAZODIL [Concomitant]
     Indication: DEPRESSION
     Dosage: 150 MG, QHS
  6. WELLBUTRIN [Concomitant]
     Dosage: 300 MG, QD
  7. AMARYL [Concomitant]
     Indication: DIABETES MELLITUS
     Dosage: 4 MG, QD
  8. MIRTAZAPINE [Concomitant]
     Indication: SLEEP DISORDER
     Dosage: 45 MG, QHS
  9. PREDNISONE [Concomitant]
     Dosage: 7.5 MG IN THE MORNING
  10. PREDNISONE [Concomitant]
     Dosage: 2.5 MG IN THE EVENING
  11. TAXOL + CARBOPLATIN [Concomitant]
     Indication: LUNG NEOPLASM MALIGNANT
     Dosage: 190 MG/525 MG EVERY 3 WEEKS
     Dates: start: 20021107, end: 20030116
  12. NAVELBINE [Concomitant]
     Indication: LUNG NEOPLASM MALIGNANT
     Dosage: 50 MG, UNK
     Dates: start: 20031121, end: 20040102
  13. GEMZAR [Concomitant]
     Indication: LUNG NEOPLASM MALIGNANT
     Dosage: 1600 MG, UNK
     Dates: start: 20040213, end: 20040301
  14. ZOMETA [Suspect]
     Indication: METASTASES TO BONE
     Dosage: 4 MG, QMO
     Dates: start: 20031111, end: 20041202

REACTIONS (8)
  - DEEP VEIN THROMBOSIS [None]
  - MALIGNANT NEOPLASM PROGRESSION [None]
  - METASTASES TO BONE [None]
  - MOUTH ULCERATION [None]
  - MUSCULOSKELETAL DISCOMFORT [None]
  - ORAL SOFT TISSUE DISORDER [None]
  - OSTEONECROSIS [None]
  - PULMONARY EMBOLISM [None]
